FAERS Safety Report 20011480 (Version 2)
Quarter: 2021Q4

REPORT INFORMATION
  Report Type: Other
  Country: JP (occurrence: JP)
  Receive Date: 20211029
  Receipt Date: 20211108
  Transmission Date: 20220303
  Serious: Yes (Hospitalization)
  Sender: FDA-Public Use
  Company Number: JP-CHUGAI-2021023521

PATIENT
  Age: 77 Year
  Sex: Male

DRUGS (2)
  1. AVASTIN [Suspect]
     Active Substance: BEVACIZUMAB
     Indication: Rectal cancer
     Route: 041
  2. XELODA [Suspect]
     Active Substance: CAPECITABINE
     Indication: Rectal cancer
     Route: 048

REACTIONS (2)
  - Anastomotic complication [Unknown]
  - Fournier^s gangrene [Unknown]
